FAERS Safety Report 9868968 (Version 1)
Quarter: 2014Q1

REPORT INFORMATION
  Report Type: Report from Study
  Country: US (occurrence: US)
  Receive Date: 20140205
  Receipt Date: 20140205
  Transmission Date: 20141002
  Serious: Yes (Death, Other)
  Sender: FDA-Public Use
  Company Number: US-ROCHE-1343866

PATIENT
  Age: 51 Year
  Sex: Male
  Weight: 79 kg

DRUGS (14)
  1. AVASTIN [Suspect]
     Indication: PARAPROTEINAEMIA
     Dosage: DOSE: 10 MG/KG
     Route: 042
     Dates: start: 20110517, end: 20110627
  2. AVASTIN [Suspect]
     Indication: LUNG NEOPLASM MALIGNANT
  3. AVASTIN [Suspect]
     Indication: HYPERGAMMAGLOBULINAEMIA BENIGN MONOCLONAL
  4. AVASTIN [Suspect]
     Indication: NON-SMALL CELL LUNG CANCER
  5. DENOSUMAB [Concomitant]
     Route: 065
  6. ALIMTA [Concomitant]
     Route: 042
  7. ALOXI [Concomitant]
     Route: 042
  8. NEULASTA [Concomitant]
     Route: 065
  9. DECADRON [Concomitant]
     Dosage: ADMINISTERED IN 50 CC NS OVER 20 MINUTES
     Route: 042
  10. DECADRON [Concomitant]
     Route: 048
  11. CARBOPLATIN [Concomitant]
     Route: 042
     Dates: start: 20110516
  12. CARBOPLATIN [Concomitant]
     Route: 042
     Dates: start: 20110627
  13. FOLIC ACID [Concomitant]
     Route: 048
  14. VITAMIN B12 [Concomitant]
     Route: 065

REACTIONS (6)
  - Death [Fatal]
  - Bone neoplasm [Unknown]
  - Neoplasm skin [Unknown]
  - Dehydration [Unknown]
  - Fatigue [Unknown]
  - White blood cell count increased [Unknown]
